FAERS Safety Report 16096944 (Version 1)
Quarter: 2019Q1

REPORT INFORMATION
  Report Type: Spontaneous
  Country: GB (occurrence: GB)
  Receive Date: 20190320
  Receipt Date: 20190320
  Transmission Date: 20190418
  Serious: Yes (Hospitalization)
  Sender: FDA-Public Use
  Company Number: GB-PFIZER INC-2019117062

PATIENT
  Age: 53 Year
  Sex: Male

DRUGS (3)
  1. MYLOTARG [Suspect]
     Active Substance: GEMTUZUMAB OZOGAMICIN
     Dosage: UNK, CYCLIC
  2. CYTARABINE. [Concomitant]
     Active Substance: CYTARABINE
     Dosage: UNK, CYCLIC
  3. DAUNORUBICIN [Concomitant]
     Active Substance: DAUNORUBICIN
     Dosage: UNK, CYCLIC

REACTIONS (1)
  - Cardiac arrest [Unknown]
